FAERS Safety Report 12317239 (Version 1)
Quarter: 2016Q2

REPORT INFORMATION
  Report Type: Report from Study
  Country: US (occurrence: US)
  Receive Date: 20160429
  Receipt Date: 20160429
  Transmission Date: 20160815
  Serious: Yes (Death, Hospitalization, Other)
  Sender: FDA-Public Use
  Company Number: US-ROCHE-1738573

PATIENT
  Age: 64 Year
  Sex: Male
  Weight: 106.2 kg

DRUGS (3)
  1. PREDNISONE. [Concomitant]
     Active Substance: PREDNISONE
     Dosage: 30MG DOSE PER DAY ;ONGOING: UNKNOWN
     Route: 048
     Dates: start: 20160313
  2. ESBRIET [Suspect]
     Active Substance: PIRFENIDONE
     Indication: IDIOPATHIC PULMONARY FIBROSIS
     Dosage: 2 CAPSULES 3 TIMES PER DAY
     Route: 048
     Dates: start: 20160326
  3. ESBRIET [Suspect]
     Active Substance: PIRFENIDONE
     Route: 048
     Dates: start: 201604, end: 201604

REACTIONS (5)
  - Gait disturbance [Unknown]
  - Dysstasia [Unknown]
  - Asthenia [Unknown]
  - Death [Fatal]
  - Dyspnoea [Not Recovered/Not Resolved]

NARRATIVE: CASE EVENT DATE: 20160405
